FAERS Safety Report 6491219-7 (Version None)
Quarter: 2009Q4

REPORT INFORMATION
  Report Type: 
  Country: None (occurrence: None)
  Receive Date: 20091207
  Receipt Date: 20091120
  Transmission Date: 20100525
  Serious: Yes (Hospitalization)
  Sender: FDA-Public Use
  Company Number: 2009AL007416

PATIENT
  Age: 56 Year
  Sex: Female

DRUGS (2)
  1. METFORMIN HCL [Suspect]
     Dosage: 30000 MG; X1; PO
     Route: 048
  2. ZOLPIDEM [Concomitant]

REACTIONS (12)
  - AGITATION [None]
  - DEPRESSED LEVEL OF CONSCIOUSNESS [None]
  - HAEMODIALYSIS [None]
  - HYPOTENSION [None]
  - HYPOTHERMIA [None]
  - LACTIC ACIDOSIS [None]
  - METABOLIC ACIDOSIS [None]
  - MULTIPLE DRUG OVERDOSE INTENTIONAL [None]
  - RESPIRATORY ACIDOSIS [None]
  - RESPIRATORY FAILURE [None]
  - SUICIDE ATTEMPT [None]
  - TACHYPNOEA [None]
